FAERS Safety Report 17438601 (Version 1)
Quarter: 2020Q1

REPORT INFORMATION
  Report Type: Spontaneous
  Country: CN (occurrence: CN)
  Receive Date: 20200220
  Receipt Date: 20200220
  Transmission Date: 20200409
  Serious: Yes (Other)
  Sender: FDA-Public Use
  Company Number: CN-BAXTER-2020BAX003636

PATIENT
  Age: 24 Year
  Sex: Female
  Weight: 63 kg

DRUGS (12)
  1. 0.9% SODIUM CHLORIDE INJECTION [Suspect]
     Active Substance: SODIUM CHLORIDE
     Dosage: FIRST TO FOURTH CHEMOTHERAPY; AIDASHENG + NS
     Route: 041
  2. 0.9% SODIUM CHLORIDE INJECTION [Suspect]
     Active Substance: SODIUM CHLORIDE
     Dosage: DOSE RE-INTRODUCED; AIDASHENG + NS
     Route: 041
  3. 0.9% SODIUM CHLORIDE INJECTION [Suspect]
     Active Substance: SODIUM CHLORIDE
     Dosage: FIFTH CHEMOTHERAPY; ENDOXAN 900 MG + NS 45 ML
     Route: 042
     Dates: start: 20191211, end: 20191211
  4. ENDOXAN [Suspect]
     Active Substance: CYCLOPHOSPHAMIDE
     Indication: BREAST CANCER FEMALE
     Dosage: FIRST TO FOURTH CHEMOTHERAPY;  ENDOXAN + NS
     Route: 042
  5. 0.9% SODIUM CHLORIDE INJECTION [Suspect]
     Active Substance: SODIUM CHLORIDE
     Indication: MEDICATION DILUTION
     Dosage: FIRST TO FOURTH CHEMOTHERAPY; ENDOXAN + NS
     Route: 042
  6. ENDOXAN [Suspect]
     Active Substance: CYCLOPHOSPHAMIDE
     Dosage: FIFTH CHEMOTHERAPY; ENDOXAN 900MG + NS 45 ML
     Route: 042
     Dates: start: 20191211, end: 20191211
  7. ENDOXAN [Suspect]
     Active Substance: CYCLOPHOSPHAMIDE
     Dosage: DOSE RE-INTRODUCED; ENDOXAN + NS
     Route: 042
  8. 0.9% SODIUM CHLORIDE INJECTION [Suspect]
     Active Substance: SODIUM CHLORIDE
     Dosage: FIFTH CHEMOTHERAPY; AIDASHENG 135 MG + NS 100 ML
     Route: 041
     Dates: start: 20191211, end: 20191211
  9. AIDASHENG [Suspect]
     Active Substance: EPIRUBICIN HYDROCHLORIDE
     Dosage: FIFTH CHEMOTHERAPY ; AIDASHENG 135 MG + NS 100 ML
     Route: 041
     Dates: start: 20191211, end: 20191211
  10. 0.9% SODIUM CHLORIDE INJECTION [Suspect]
     Active Substance: SODIUM CHLORIDE
     Dosage: DOSE RE-INTRODUCED; ENDOXAN + NS
     Route: 042
  11. AIDASHENG [Suspect]
     Active Substance: EPIRUBICIN HYDROCHLORIDE
     Indication: BREAST CANCER FEMALE
     Dosage: FIRST TO FOURTH CHEMOTHERAPY; AIDASHENG + NS
     Route: 041
  12. AIDASHENG [Suspect]
     Active Substance: EPIRUBICIN HYDROCHLORIDE
     Dosage: DOSE RE-INTRODUCED; AIDASHENG + NS
     Route: 041

REACTIONS (2)
  - White blood cell count decreased [Recovered/Resolved]
  - Agranulocytosis [Recovered/Resolved]

NARRATIVE: CASE EVENT DATE: 20191220
